FAERS Safety Report 10092811 (Version 1)
Quarter: 2014Q2

REPORT INFORMATION
  Report Type: Spontaneous
  Country: US (occurrence: US)
  Receive Date: 20140421
  Receipt Date: 20140421
  Transmission Date: 20141212
  Serious: No
  Sender: FDA-Public Use
  Company Number: US-SANOFI-AVENTIS-2013SA094113

PATIENT
  Age: 86 Year
  Sex: Female

DRUGS (3)
  1. ALLEGRA [Suspect]
     Indication: RHINORRHOEA
     Route: 048
     Dates: start: 20130911, end: 20130912
  2. ALLEGRA [Suspect]
     Indication: PYREXIA
     Route: 048
     Dates: start: 20130911, end: 20130912
  3. AMPICILLIN [Suspect]
     Route: 065

REACTIONS (1)
  - Increased viscosity of nasal secretion [Not Recovered/Not Resolved]
